FAERS Safety Report 11038138 (Version 2)
Quarter: 2015Q2

REPORT INFORMATION
  Report Type: Spontaneous
  Country: US (occurrence: US)
  Receive Date: 20150416
  Receipt Date: 20150513
  Transmission Date: 20150821
  Serious: No
  Sender: FDA-Public Use
  Company Number: US-PFIZER INC-2015123419

PATIENT
  Age: 53 Year
  Sex: Female
  Weight: 62.13 kg

DRUGS (7)
  1. REVATIO [Suspect]
     Active Substance: SILDENAFIL CITRATE
     Dosage: 40 MG, 3X/DAY
     Route: 048
  2. DIGOXIN. [Concomitant]
     Active Substance: DIGOXIN
     Dosage: 250 ?G, DAILY
     Route: 048
  3. NEURONTIN [Concomitant]
     Active Substance: GABAPENTIN
     Dosage: 600 MG, 3X/DAY
     Route: 048
  4. ALDACTONE [Concomitant]
     Active Substance: SPIRONOLACTONE
     Dosage: 200 MG, 1X/DAY
     Route: 048
  5. LASIX [Concomitant]
     Active Substance: FUROSEMIDE
     Dosage: 40 MG, UNK
  6. DILTIAZEM HCL [Concomitant]
     Active Substance: DILTIAZEM HYDROCHLORIDE
     Dosage: 120 MG, 2X/DAY
  7. REMODULIN [Concomitant]
     Active Substance: TREPROSTINIL
     Dosage: UNK (2.5 MG/ML SOLUTION INFUSE 5 NANOGRAM/KG/MINUTE )
     Route: 058

REACTIONS (4)
  - Fatigue [Unknown]
  - Orthopnoea [Unknown]
  - Soft tissue disorder [Unknown]
  - Dyspnoea [Unknown]
